FAERS Safety Report 19749377 (Version 1)
Quarter: 2021Q3

REPORT INFORMATION
  Report Type: Spontaneous
  Country: US (occurrence: US)
  Receive Date: 20210824
  Receipt Date: 20210824
  Transmission Date: 20211014
  Serious: No
  Sender: FDA-Public Use
  Company Number: None

PATIENT
  Sex: Male

DRUGS (1)
  1. TRUVADA [Suspect]
     Active Substance: EMTRICITABINE\TENOFOVIR DISOPROXIL FUMARATE
     Indication: DRUG THERAPY
     Dosage: ?          OTHER DOSE:200/300MG;?
     Route: 048
     Dates: start: 20210208, end: 202105

REACTIONS (1)
  - Renal impairment [None]
